FAERS Safety Report 14363346 (Version 1)
Quarter: 2018Q1

REPORT INFORMATION
  Report Type: Spontaneous
  Country: GB (occurrence: GB)
  Receive Date: 20180108
  Receipt Date: 20180108
  Transmission Date: 20180509
  Serious: Yes (Hospitalization)
  Sender: FDA-Public Use
  Company Number: GB-BAYER-2018-003694

PATIENT
  Sex: Female

DRUGS (1)
  1. FEMINAX ULTRA 250MG GASTRO-RESISTANT TABLETS [Suspect]
     Active Substance: NAPROXEN
     Route: 048

REACTIONS (1)
  - Gastric ulcer [Not Recovered/Not Resolved]
